FAERS Safety Report 4707572-8 (Version None)
Quarter: 2005Q3

REPORT INFORMATION
  Report Type: 
  Country: None (occurrence: None)
  Receive Date: 20050706
  Receipt Date: 20050621
  Transmission Date: 20060218
  Serious: Yes (Life-Threatening, Hospitalization)
  Sender: FDA-Public Use
  Company Number: FR-JNJFOC-20050604134

PATIENT
  Age: 61 Year
  Sex: Female

DRUGS (5)
  1. IXPRIM [Suspect]
     Indication: PAIN
     Route: 049
  2. CORTANCYL [Suspect]
     Indication: RHEUMATOID ARTHRITIS
     Route: 049
  3. HUMIRA [Suspect]
     Indication: POLYARTHRITIS
     Route: 058
  4. NEXIUM [Suspect]
     Indication: DRUG USE FOR UNKNOWN INDICATION
     Route: 049
  5. LEVOTHYROX [Suspect]
     Route: 065

REACTIONS (1)
  - TUBERCULOSIS [None]
